FAERS Safety Report 21445703 (Version 1)
Quarter: 2022Q4

REPORT INFORMATION
  Report Type: Spontaneous
  Country: FR (occurrence: FR)
  Receive Date: 20221012
  Receipt Date: 20221012
  Transmission Date: 20230112
  Serious: Yes (Other)
  Sender: FDA-Public Use
  Company Number: FR-AMERICAN REGENT INC-2022002942

PATIENT
  Sex: Female

DRUGS (8)
  1. VENOFER [Suspect]
     Active Substance: IRON SUCROSE
     Indication: Alopecia
     Dosage: UNK
     Route: 042
  2. FERINJECT [Suspect]
     Active Substance: FERRIC CARBOXYMALTOSE
     Indication: Alopecia
     Dosage: UNK
     Route: 042
  3. AMOXICILLIN [Suspect]
     Active Substance: AMOXICILLIN
     Indication: Inflammation
     Dosage: UNK
     Route: 048
  4. MINOXIDIL [Suspect]
     Active Substance: MINOXIDIL
     Indication: Alopecia areata
     Dosage: UNK
     Route: 065
  5. ISOTRETINOIN [Suspect]
     Active Substance: ISOTRETINOIN
     Indication: Acne
     Dosage: UNK
     Route: 065
  6. CLOBETASOL PROPIONATE [Suspect]
     Active Substance: CLOBETASOL PROPIONATE
     Indication: Inflammation
     Dosage: UNK
     Route: 065
  7. CYANOCOBALAMIN\PYRIDOXINE\THIAMINE [Suspect]
     Active Substance: CYANOCOBALAMIN\PYRIDOXINE\THIAMINE
     Indication: Alopecia
     Dosage: UNK
     Route: 065
  8. KENACORT [Suspect]
     Active Substance: TRIAMCINOLONE
     Indication: Product used for unknown indication
     Dosage: 40 MILLIGRAM ONE INJECTION
     Route: 065

REACTIONS (8)
  - Ocular hypertension [Unknown]
  - Injection site alopecia [Recovered/Resolved]
  - Depression [Unknown]
  - Insomnia [Unknown]
  - Pain [Unknown]
  - Dermatitis [Recovered/Resolved]
  - Headache [Unknown]
  - Off label use [Unknown]
